FAERS Safety Report 12801858 (Version 1)
Quarter: 2016Q4

REPORT INFORMATION
  Report Type: Report from Study
  Country: CN (occurrence: CN)
  Receive Date: 20161003
  Receipt Date: 20161003
  Transmission Date: 20170207
  Serious: Yes (Other)
  Sender: FDA-Public Use
  Company Number: PHHY2016CN132044

PATIENT
  Age: 28 Year
  Sex: Male

DRUGS (47)
  1. TACROLIMUS. [Suspect]
     Active Substance: TACROLIMUS
     Dosage: 2 MG, QD
     Route: 065
     Dates: start: 20160201, end: 20160204
  2. CALCINATE//CALCIUM GLUCONATE [Concomitant]
     Indication: PROPHYLAXIS
     Dosage: 3000 MG, QD
     Route: 042
     Dates: start: 20160125, end: 20160126
  3. IMIPENEM AND CILASTATIN [Concomitant]
     Active Substance: CILASTATIN SODIUM\IMIPENEM
     Indication: INFECTION PROPHYLAXIS
     Dosage: 500 MG, PRN
     Route: 042
     Dates: start: 20160124, end: 20160124
  4. MYFORTIC [Suspect]
     Active Substance: MYCOPHENOLATE SODIUM
     Dosage: 1440MG,QD
     Route: 065
     Dates: start: 20160125, end: 20160201
  5. MAGNESIN//MAGNESIUM SULFATE [Concomitant]
     Indication: ELECTROLYTE SUBSTITUTION THERAPY
     Dosage: 4.8 ML, SOS
     Route: 042
     Dates: start: 20160124, end: 20160124
  6. SODIUM BICARBONATE. [Concomitant]
     Active Substance: SODIUM BICARBONATE
     Indication: ELECTROLYTE SUBSTITUTION THERAPY
     Dosage: 500 ML, SOS
     Route: 042
     Dates: start: 20160124, end: 20160124
  7. FUROSEMIDE. [Concomitant]
     Active Substance: FUROSEMIDE
     Indication: POLYURIA
     Dosage: 80 MG, PRN
     Route: 042
     Dates: start: 20160124, end: 20160124
  8. OMEPRAL//OMEPRAZOLE MAGNESIUM [Concomitant]
     Indication: PROPHYLAXIS
  9. MYFORTIC [Suspect]
     Active Substance: MYCOPHENOLATE SODIUM
     Indication: RENAL TRANSPLANT
     Dosage: 720 MG, QD
     Route: 065
     Dates: start: 20160124, end: 20160124
  10. METHYLPREDISOLONE [Suspect]
     Active Substance: METHYLPREDNISOLONE
     Dosage: 700 MG, QD
     Route: 065
     Dates: start: 20160125, end: 20160126
  11. METHYLPREDISOLONE [Suspect]
     Active Substance: METHYLPREDNISOLONE
     Dosage: 320 MG, QD
     Route: 065
     Dates: start: 20160127, end: 20160127
  12. METHYLPREDISOLONE [Suspect]
     Active Substance: METHYLPREDNISOLONE
     Dosage: 40 MG, QD
     Route: 065
     Dates: start: 20160128, end: 20160201
  13. AMIKACIN [Concomitant]
     Active Substance: AMIKACIN
     Indication: PROPHYLAXIS
     Dosage: 400 MG, SOS
     Route: 042
     Dates: start: 20160124, end: 20160124
  14. FUROSEMIDE. [Concomitant]
     Active Substance: FUROSEMIDE
     Dosage: 40 MG, PRN
     Route: 042
     Dates: start: 20160204, end: 20160204
  15. HEPARIN SODIUM. [Concomitant]
     Active Substance: HEPARIN SODIUM
     Indication: PROPHYLAXIS
     Dosage: 12500 IU, PRN
     Route: 042
     Dates: start: 20160126, end: 20160126
  16. HEPARIN SODIUM. [Concomitant]
     Active Substance: HEPARIN SODIUM
     Dosage: 12500 IU, UNK
     Dates: start: 20160126, end: 20160204
  17. SODIUM BICARBONATE. [Concomitant]
     Active Substance: SODIUM BICARBONATE
     Indication: URINE ALKALINISATION THERAPY
     Dosage: 1000 MG, BID
     Route: 048
     Dates: start: 20160201, end: 20160204
  18. POTASSIUM CHLORIDE. [Concomitant]
     Active Substance: POTASSIUM CHLORIDE
     Indication: ELECTROLYTE SUBSTITUTION THERAPY
     Dosage: 12 ML, SOS
     Route: 042
     Dates: start: 20160124, end: 20160124
  19. SODIUM CHLORIDE. [Concomitant]
     Active Substance: SODIUM CHLORIDE
     Indication: ELECTROLYTE SUBSTITUTION THERAPY
     Dosage: 500 ML, PRN
     Route: 042
     Dates: start: 20160124, end: 20160124
  20. DILTIAZEM HYDROCHLORIDE. [Concomitant]
     Active Substance: DILTIAZEM HYDROCHLORIDE
     Indication: PROPHYLAXIS
     Dosage: 30 MG, BID
     Route: 048
     Dates: start: 20160125, end: 20160203
  21. INSULIN [Concomitant]
     Active Substance: INSULIN NOS
     Indication: ELECTROLYTE SUBSTITUTION THERAPY
     Dosage: 18 IU, PRN
     Route: 042
     Dates: start: 20160124, end: 20160124
  22. TALCID/ALUMINIUM MAGNESIUM CARBONATE [Concomitant]
     Indication: PROPHYLAXIS
  23. TACROLIMUS. [Suspect]
     Active Substance: TACROLIMUS
     Indication: PRODUCT USED FOR UNKNOWN INDICATION
     Dosage: 6 MG, QD
     Route: 065
     Dates: start: 20160125, end: 20160201
  24. MANNITOL. [Concomitant]
     Active Substance: MANNITOL
     Indication: PROPHYLAXIS
     Dosage: 125 ML, SOS
     Route: 042
     Dates: start: 20160124, end: 20160124
  25. CASPOFUNGIN ACETATE [Concomitant]
     Active Substance: CASPOFUNGIN ACETATE
     Indication: INFECTION PROPHYLAXIS
     Dosage: 50 MG, SOS
     Route: 042
     Dates: start: 20160124, end: 20160124
  26. SODIUM CHLORIDE. [Concomitant]
     Active Substance: SODIUM CHLORIDE
     Dosage: 500 ML, PRN
     Route: 042
     Dates: start: 20160125, end: 20160125
  27. GANCICLOVIR. [Concomitant]
     Active Substance: GANCICLOVIR
     Indication: VIRAL INFECTION
     Dosage: 450 MG, QD
     Route: 042
     Dates: start: 20160202, end: 20160204
  28. HEPATITIS B IMMUNE GLOBULIN [Concomitant]
     Active Substance: HUMAN HEPATITIS B VIRUS IMMUNE GLOBULIN
     Indication: ANTIVIRAL PROPHYLAXIS
     Dosage: 400 IU, PRN
     Route: 030
     Dates: start: 20160125, end: 20160125
  29. IMIPENEM AND CILASTATIN [Concomitant]
     Active Substance: CILASTATIN SODIUM\IMIPENEM
     Dosage: 500 MG, BID
     Route: 042
     Dates: start: 20160202, end: 20160204
  30. OMEPRAZOLE. [Concomitant]
     Active Substance: OMEPRAZOLE
     Indication: ANTACID THERAPY
     Dosage: 40 MG, QD
     Route: 042
     Dates: start: 20160125, end: 20160202
  31. SODIUM PHOSPHATE [Concomitant]
     Active Substance: SODIUM PHOSPHATE
     Indication: GASTRIC LAVAGE
     Dosage: 133 ML, PRN
     Route: 054
     Dates: start: 20160124, end: 20160124
  32. VORICONAZOLE. [Concomitant]
     Active Substance: VORICONAZOLE
     Indication: INFECTION PROPHYLAXIS
     Dosage: 200 MG, Q12H
     Route: 048
     Dates: start: 20160201, end: 20160204
  33. MYFORTIC [Suspect]
     Active Substance: MYCOPHENOLATE SODIUM
     Dosage: 1080 MG,QD
     Route: 065
     Dates: start: 20160201, end: 20160204
  34. BASILIXIMAB [Suspect]
     Active Substance: BASILIXIMAB
     Indication: RENAL TRANSPLANT
     Dosage: 20 MG, QD
     Route: 065
     Dates: start: 20160124, end: 20160124
  35. METHYLPREDISOLONE [Suspect]
     Active Substance: METHYLPREDNISOLONE
     Indication: PROPHYLAXIS
     Dosage: 820 MG, QD
     Route: 065
     Dates: start: 20160124, end: 20160124
  36. BASILIXIMAB [Suspect]
     Active Substance: BASILIXIMAB
     Dosage: 20 MG, QD
     Route: 065
     Dates: start: 20160128, end: 20160128
  37. METHYLPREDISOLONE [Suspect]
     Active Substance: METHYLPREDNISOLONE
     Dosage: 20 MG, QD
     Route: 065
     Dates: start: 20160201, end: 20160204
  38. AMPHOTERICIN B. [Concomitant]
     Active Substance: AMPHOTERICIN B
     Indication: INFECTION PROPHYLAXIS
     Dosage: 10 MG, QD
     Route: 042
     Dates: start: 20160125, end: 20160202
  39. IMIPENEM AND CILASTATIN [Concomitant]
     Active Substance: CILASTATIN SODIUM\IMIPENEM
     Dosage: 500 MG, Q8H
     Route: 042
     Dates: start: 20160125, end: 20160202
  40. OMEPRAZOLE. [Concomitant]
     Active Substance: OMEPRAZOLE
     Indication: PROPHYLAXIS
  41. TALCID/ALUMINIUM MAGNESIUM CARBONATE [Concomitant]
     Indication: ANTACID THERAPY
     Dosage: 1000 MG, QD
     Route: 048
     Dates: start: 20160125, end: 20160204
  42. ALPAX//ALPRAZOLAM [Concomitant]
     Indication: SEDATION
     Dosage: 0.4 MG, QN
     Route: 048
     Dates: start: 20160125, end: 20160204
  43. SULFAMETHOXAZOLE [Concomitant]
     Active Substance: SULFAMETHOXAZOLE
     Indication: INFECTION PROPHYLAXIS
     Dosage: 240 MG, QD
     Route: 048
     Dates: start: 20160201, end: 20160204
  44. DEXAMETHASONE. [Concomitant]
     Active Substance: DEXAMETHASONE
     Indication: PROPHYLAXIS
     Dosage: 10 MG, SOS
     Route: 042
     Dates: start: 20160124, end: 20160124
  45. DIAZEPAM. [Concomitant]
     Active Substance: DIAZEPAM
     Indication: SEDATION
     Dosage: 5 MG, PRN
     Route: 048
     Dates: start: 20160124, end: 20160124
  46. OMEPRAL//OMEPRAZOLE MAGNESIUM [Concomitant]
     Indication: ANTACID THERAPY
     Dosage: 20 MG, QD
     Route: 048
     Dates: start: 20160202, end: 20160204
  47. SODIUM CHLORIDE. [Concomitant]
     Active Substance: SODIUM CHLORIDE
     Indication: ELECTROLYTE SUBSTITUTION THERAPY
     Dosage: 500 ML, PRN
     Route: 042
     Dates: start: 20160126, end: 20160126

REACTIONS (8)
  - Lymphocyte count decreased [Unknown]
  - C-reactive protein increased [Unknown]
  - Blood glucose increased [Unknown]
  - Red blood cells urine positive [Unknown]
  - Haemoglobin decreased [Unknown]
  - Blood urea increased [Unknown]
  - Incision site pain [Recovered/Resolved]
  - Protein urine present [Unknown]

NARRATIVE: CASE EVENT DATE: 20160125
